FAERS Safety Report 8125332-5 (Version None)
Quarter: 2012Q1

REPORT INFORMATION
  Report Type: 
  Country: None (occurrence: None)
  Receive Date: 20120209
  Receipt Date: 20120208
  Transmission Date: 20120608
  Serious: Yes (Hospitalization)
  Sender: FDA-Public Use
  Company Number: US-GLAXOSMITHKLINE-A0963517A

PATIENT
  Age: 80 Year
  Sex: Male

DRUGS (13)
  1. VOTRIENT [Suspect]
     Indication: RENAL CELL CARCINOMA
     Dosage: 4TAB PER DAY
     Route: 048
     Dates: start: 20110901
  2. HYDROCHLOROTHIAZIDE [Concomitant]
  3. NORVASC [Concomitant]
  4. MULTAQ [Concomitant]
  5. PRADAXA [Concomitant]
  6. LANTUS [Concomitant]
  7. MULTI-VITAMIN [Concomitant]
  8. LEVOFLOXACIN [Concomitant]
  9. HUMALOG [Suspect]
     Indication: TYPE 1 DIABETES MELLITUS
     Route: 065
  10. DIOVAN [Concomitant]
  11. CARDURA [Concomitant]
  12. LIPITOR [Concomitant]
  13. IBUPROFEN (ADVIL) [Concomitant]

REACTIONS (9)
  - WEIGHT DECREASED [None]
  - HEART RATE IRREGULAR [None]
  - THERAPEUTIC RESPONSE DELAYED [None]
  - ARRHYTHMIA [None]
  - PYREXIA [None]
  - ONYCHOCLASIS [None]
  - HEART RATE INCREASED [None]
  - HAIR COLOUR CHANGES [None]
  - DRUG INTERACTION [None]
